FAERS Safety Report 11922433 (Version 1)
Quarter: 2016Q1

REPORT INFORMATION
  Report Type: Other
  Country: GB (occurrence: GB)
  Receive Date: 20160115
  Receipt Date: 20160115
  Transmission Date: 20160526
  Serious: Yes (Death, Other)
  Sender: FDA-Public Use
  Company Number: GB-ABBVIE-98P-167-0078100-00

PATIENT
  Age: 27 Year
  Sex: Male

DRUGS (5)
  1. VALPROATE SODIUM. [Interacting]
     Active Substance: VALPROATE SODIUM
  2. VALPROATE SODIUM. [Suspect]
     Active Substance: VALPROATE SODIUM
     Indication: EPILEPSY
     Route: 048
     Dates: start: 199312
  3. CARBAMAZEPINE. [Concomitant]
     Active Substance: CARBAMAZEPINE
     Indication: PRODUCT USED FOR UNKNOWN INDICATION
  4. VALPROATE SODIUM. [Interacting]
     Active Substance: VALPROATE SODIUM
  5. MEFLOQUINE HYDROCHLORIDE. [Interacting]
     Active Substance: MEFLOQUINE HYDROCHLORIDE
     Indication: MALARIA PROPHYLAXIS
     Route: 048
     Dates: start: 19940527

REACTIONS (6)
  - Drug interaction [Unknown]
  - Foot fracture [Unknown]
  - Depression [Unknown]
  - Psychotic disorder [Unknown]
  - Drowning [Fatal]
  - Epilepsy [Unknown]

NARRATIVE: CASE EVENT DATE: 19940626
